FAERS Safety Report 9345926 (Version 2)
Quarter: 2013Q2

REPORT INFORMATION
  Report Type: Spontaneous
  Country: SE (occurrence: SE)
  Receive Date: 20130613
  Receipt Date: 20130626
  Transmission Date: 20140414
  Serious: Yes (Hospitalization, Other)
  Sender: FDA-Public Use
  Company Number: PHHY2013SE057807

PATIENT
  Age: 77 Year
  Sex: Male

DRUGS (18)
  1. CARBAMAZEPINE [Suspect]
     Indication: GRAND MAL CONVULSION
     Dosage: 200 MG, BID
  2. CLOZAPINE [Suspect]
     Indication: SCHIZOPHRENIA
     Dosage: 5.5 DF, DAILY
  3. GLYCERYL TRINITRATE [Suspect]
     Indication: MYOCARDIAL ISCHAEMIA
     Dosage: WHEN NEEDED
  4. DIAZEPAM [Suspect]
     Indication: ANXIETY
     Dosage: UNK UKN, UNK
  5. OXYCODONE HYDROCHLORIDE [Suspect]
     Dosage: 5 MG
  6. LEVOMEPROMAZINE [Suspect]
     Indication: SCHIZOPHRENIA
     Dosage: 100 MG
  7. PROPIOMAZINE [Suspect]
     Indication: ANXIETY
     Dosage: 2 DF, QD
  8. ACETYLSALICYLIC ACID [Concomitant]
     Indication: MYOCARDIAL ISCHAEMIA
     Dosage: 75 MG, QD
  9. DIPYRIDAMOLE [Concomitant]
     Indication: TRANSIENT ISCHAEMIC ATTACK
     Dosage: 200 MG, BID
  10. ISOSORBIDE MONONITRATE [Concomitant]
     Indication: MYOCARDIAL ISCHAEMIA
     Dosage: 30 MG, QD
  11. SIMVASTATIN [Concomitant]
     Indication: MYOCARDIAL ISCHAEMIA
     Dosage: 40 MG, QD
  12. OMEPRAZOLE [Concomitant]
     Dosage: 20 MG, QD
  13. LEVOTHYROXINE [Concomitant]
     Indication: HYPOTHYROIDISM
     Dosage: 50 UG, QD
  14. LEVOTHYROXINE [Concomitant]
     Indication: GOITRE
  15. LAMOTRIGINE [Concomitant]
     Indication: GRAND MAL CONVULSION
     Dosage: 2 DF, QD
  16. VENLAFAXINE [Concomitant]
     Dosage: 75 MG, QD
  17. FINASTERIDE [Concomitant]
     Indication: BENIGN PROSTATIC HYPERPLASIA
     Dosage: 5 MG, QD
  18. MACROGOL [Concomitant]
     Indication: CONSTIPATION
     Dosage: 2 DF, DAILY

REACTIONS (13)
  - Drug level increased [Unknown]
  - Screaming [Unknown]
  - Pain in extremity [Unknown]
  - Stupor [Unknown]
  - Daydreaming [Recovering/Resolving]
  - Transient ischaemic attack [Unknown]
  - Altered state of consciousness [Unknown]
  - Sepsis [Unknown]
  - Tremor [Recovered/Resolved]
  - Pneumonia [Unknown]
  - Arthralgia [Unknown]
  - Drug interaction [Unknown]
  - Withdrawal syndrome [Unknown]
